FAERS Safety Report 18861127 (Version 4)
Quarter: 2021Q2

REPORT INFORMATION
  Report Type: Report from Study
  Country: US (occurrence: US)
  Receive Date: 20210208
  Receipt Date: 20210417
  Transmission Date: 20210717
  Serious: No
  Sender: FDA-Public Use
  Company Number: NVSC2021US021819

PATIENT
  Sex: Female

DRUGS (1)
  1. COSENTYX [Suspect]
     Active Substance: SECUKINUMAB
     Indication: PSORIATIC ARTHROPATHY
     Dosage: 300 MG, QW(ONCE WEEKLY FOR 5 WEEKS, THEN ONCE IN 4 WEEK)
     Route: 058
     Dates: start: 20201022

REACTIONS (2)
  - Rash macular [Not Recovered/Not Resolved]
  - Drug ineffective [Unknown]
